FAERS Safety Report 26199062 (Version 1)
Quarter: 2025Q4

REPORT INFORMATION
  Report Type: Spontaneous
  Country: US (occurrence: US)
  Receive Date: 20251225
  Receipt Date: 20251225
  Transmission Date: 20260117
  Serious: No
  Sender: ALEXION PHARMACEUTICALS
  Company Number: US-AstraZeneca-CH-01017139A

PATIENT

DRUGS (4)
  1. SYMBICORT [Suspect]
     Active Substance: BUDESONIDE\FORMOTEROL FUMARATE DIHYDRATE
     Route: 065
  2. TRYPTYR [Concomitant]
     Active Substance: ACOLTREMON
     Route: 065
  3. IBRANCE [Concomitant]
     Active Substance: PALBOCICLIB
     Route: 065
  4. XIIDRA [Concomitant]
     Active Substance: LIFITEGRAST
     Route: 065

REACTIONS (1)
  - Eye irritation [Unknown]
